FAERS Safety Report 5963840-3 (Version None)
Quarter: 2008Q4

REPORT INFORMATION
  Report Type: 
  Country: None (occurrence: None)
  Receive Date: 20081124
  Receipt Date: 20081113
  Transmission Date: 20090506
  Serious: Yes (Hospitalization)
  Sender: FDA-Public Use
  Company Number: US-BAXTER-2008BH012426

PATIENT
  Age: 40 Year
  Sex: Female

DRUGS (1)
  1. EXTRANEAL [Suspect]
     Indication: RENAL FAILURE CHRONIC
     Route: 033
     Dates: end: 20081108

REACTIONS (2)
  - CATHETER RELATED COMPLICATION [None]
  - PULMONARY OEDEMA [None]
